FAERS Safety Report 6700131-7 (Version None)
Quarter: 2010Q2

REPORT INFORMATION
  Report Type: 
  Country: None (occurrence: None)
  Receive Date: 20100423
  Receipt Date: 20091203
  Transmission Date: 20101027
  Serious: No
  Sender: FDA-Public Use
  Company Number: 2009UF0267

PATIENT
  Age: 10 Year
  Sex: Female
  Weight: 27.2158 kg

DRUGS (1)
  1. ULESFIA [Suspect]
     Indication: LICE INFESTATION
     Dosage: TWO BOTTLES, TWICE
     Dates: start: 20091202, end: 20091202

REACTIONS (1)
  - PRURITUS [None]
